FAERS Safety Report 9982330 (Version 1)
Quarter: 2014Q1

REPORT INFORMATION
  Report Type: Report from Study
  Country: US (occurrence: US)
  Receive Date: 20140307
  Receipt Date: 20140307
  Transmission Date: 20141002
  Serious: No
  Sender: FDA-Public Use
  Company Number: US-ABBVIE-13P-163-1177300-00

PATIENT
  Age: 61 Year
  Sex: Male

DRUGS (8)
  1. HUMIRA [Suspect]
     Indication: CROHN^S DISEASE
     Dates: start: 20131023
  2. PRAVASTATIN [Concomitant]
     Indication: BLOOD CHOLESTEROL
  3. ASACOL [Concomitant]
     Indication: CROHN^S DISEASE
  4. METFORMIN [Concomitant]
     Indication: BLOOD GLUCOSE INCREASED
  5. BENTYL [Concomitant]
     Indication: CROHN^S DISEASE
  6. PAXIL [Concomitant]
     Indication: PRODUCT USED FOR UNKNOWN INDICATION
  7. CLONIDINE [Concomitant]
     Indication: ANXIETY
  8. BABY ASPIRIN [Concomitant]
     Indication: CARDIOVASCULAR EVENT PROPHYLAXIS

REACTIONS (2)
  - Needle issue [Unknown]
  - Injection site pain [Recovered/Resolved]
